FAERS Safety Report 12079789 (Version 5)
Quarter: 2016Q2

REPORT INFORMATION
  Report Type: Report from Study
  Country: FR (occurrence: FR)
  Receive Date: 20160216
  Receipt Date: 20160405
  Transmission Date: 20160815
  Serious: Yes (Hospitalization, Other)
  Sender: FDA-Public Use
  Company Number: FR-CELGENE-FRA-2016021000

PATIENT
  Age: 74 Year
  Sex: Female
  Weight: 50 kg

DRUGS (7)
  1. CYCLOPHOSPHAMIDE. [Suspect]
     Active Substance: CYCLOPHOSPHAMIDE
     Indication: DIFFUSE LARGE B-CELL LYMPHOMA
     Route: 065
     Dates: start: 20151223
  2. PREDNISOLONE. [Suspect]
     Active Substance: PREDNISOLONE
     Indication: DIFFUSE LARGE B-CELL LYMPHOMA
     Route: 065
     Dates: start: 20151223
  3. ROMIDEPSIN [Suspect]
     Active Substance: ROMIDEPSIN
     Route: 041
     Dates: start: 20160208
  4. DOXORUBICIN [Suspect]
     Active Substance: DOXORUBICIN
     Indication: DIFFUSE LARGE B-CELL LYMPHOMA
     Route: 065
     Dates: start: 20151223
  5. ORELOX [Concomitant]
     Active Substance: CEFPODOXIME
     Indication: RHINITIS
     Route: 065
     Dates: start: 201511
  6. ROMIDEPSIN [Suspect]
     Active Substance: ROMIDEPSIN
     Indication: DIFFUSE LARGE B-CELL LYMPHOMA
     Route: 041
     Dates: start: 20151223, end: 20160120
  7. VINCRISTINE [Suspect]
     Active Substance: VINCRISTINE
     Indication: DIFFUSE LARGE B-CELL LYMPHOMA
     Route: 065
     Dates: start: 20151223

REACTIONS (3)
  - Klebsiella infection [Recovered/Resolved]
  - Atrial fibrillation [Recovered/Resolved]
  - Bone marrow failure [Recovered/Resolved]

NARRATIVE: CASE EVENT DATE: 20160116
